FAERS Safety Report 8443422-4 (Version None)
Quarter: 2012Q2

REPORT INFORMATION
  Report Type: 
  Country: None (occurrence: None)
  Receive Date: 20120612
  Receipt Date: 20120612
  Transmission Date: 20120825
  Serious: No
  Sender: FDA-Public Use
  Company Number: None

PATIENT

DRUGS (2)
  1. CALCIUM GLUCONATE [Suspect]
     Dosage: INJECTABLE INJECTION 100 MG/ML SINGLE DOSE VIAL 10 ML
  2. CUPRIC SULFATE [Suspect]
     Dosage: INJECTABLE INJECTION 4 MG/10 ML SINGLE DOSE VIAL 10 ML

REACTIONS (3)
  - CIRCUMSTANCE OR INFORMATION CAPABLE OF LEADING TO MEDICATION ERROR [None]
  - DRUG LABEL CONFUSION [None]
  - MEDICATION ERROR [None]
